FAERS Safety Report 5863017-6 (Version None)
Quarter: 2008Q3

REPORT INFORMATION
  Report Type: 
  Country: None (occurrence: None)
  Receive Date: 20080819
  Receipt Date: 20071001
  Transmission Date: 20090109
  Serious: Yes (Hospitalization)
  Sender: FDA-Public Use
  Company Number: 17585

PATIENT
  Sex: Male

DRUGS (3)
  1. LEUCOVORIN CALCIUM [Suspect]
  2. FLUOROURACIL [Suspect]
  3. OXALIPLATIN [Suspect]

REACTIONS (1)
  - DIARRHOEA [None]
